FAERS Safety Report 10243297 (Version 1)
Quarter: 2014Q2

REPORT INFORMATION
  Report Type: Report from Study
  Country: CO (occurrence: CO)
  Receive Date: 20140618
  Receipt Date: 20140618
  Transmission Date: 20141212
  Serious: Yes (Hospitalization)
  Sender: FDA-Public Use
  Company Number: PHHY2014CO074951

PATIENT
  Age: 6 Year
  Sex: 0

DRUGS (6)
  1. EXJADE [Suspect]
     Indication: SICKLE CELL ANAEMIA
     Dosage: 500 MG, QD
     Route: 048
     Dates: start: 201312
  2. FOLIC ACID [Concomitant]
     Dosage: UNK UKN, UNK
  3. MONTELUKAST [Concomitant]
     Dosage: UNK UKN, UNK
  4. HYDROXYUREA [Concomitant]
     Dosage: UNK UKN, UNK
  5. DIPYRONE [Concomitant]
     Dosage: UNK UKN, UNK
  6. ACETAMINOPHEN [Concomitant]
     Dosage: UNK UKN, UNK

REACTIONS (1)
  - Pain in extremity [Recovering/Resolving]
